FAERS Safety Report 5793164-9 (Version None)
Quarter: 2008Q2

REPORT INFORMATION
  Report Type: 
  Country: None (occurrence: None)
  Receive Date: 20080626
  Receipt Date: 20080619
  Transmission Date: 20081010
  Serious: No
  Sender: FDA-Public Use
  Company Number: APP200800542

PATIENT
  Age: 31 Year
  Sex: Female
  Weight: 71.6683 kg

DRUGS (5)
  1. HEPARIN SODIUM INJECTION [Suspect]
     Indication: ANTICOAGULANT THERAPY
     Dosage: 5000 USP UNITS, 2 IN 1 D, SUBCUTANEOUS
     Route: 058
     Dates: start: 20080401
  2. HEPARIN SODIUM INJECTION [Suspect]
     Indication: ANTICOAGULANT THERAPY
     Dosage: 5000 USP UNITS, 2 IN 1 D, SUBCUTANEOUS
     Route: 058
     Dates: start: 20080609
  3. IRON (IRON) [Concomitant]
  4. FOLIC ACID [Concomitant]
  5. ASPIRIN [Concomitant]

REACTIONS (6)
  - DRUG EXPOSURE DURING PREGNANCY [None]
  - INJECTION SITE ERYTHEMA [None]
  - INJECTION SITE PAIN [None]
  - INJECTION SITE SWELLING [None]
  - RESPIRATION ABNORMAL [None]
  - URTICARIA [None]
